FAERS Safety Report 21591528 (Version 3)
Quarter: 2023Q1

REPORT INFORMATION
  Report Type: Spontaneous
  Country: JP (occurrence: JP)
  Receive Date: 20221114
  Receipt Date: 20230124
  Transmission Date: 20230418
  Serious: Yes (Hospitalization)
  Sender: FDA-Public Use
  Company Number: JP-BAYER-2022A156107

PATIENT
  Age: 68 Year
  Sex: Male

DRUGS (6)
  1. RIVAROXABAN [Suspect]
     Active Substance: RIVAROXABAN
     Indication: Atrial fibrillation
     Dosage: UNK
     Route: 048
     Dates: end: 20220411
  2. BENZBROMARONE [Concomitant]
     Active Substance: BENZBROMARONE
  3. FAMOTIDINE [Concomitant]
     Active Substance: FAMOTIDINE
  4. DIGOXIN [Concomitant]
     Active Substance: DIGOXIN
  5. CANDESARTAN CILEXETIL\HYDROCHLOROTHIAZIDE [Concomitant]
     Active Substance: CANDESARTAN CILEXETIL\HYDROCHLOROTHIAZIDE
  6. NILVADIPINE [Concomitant]
     Active Substance: NILVADIPINE

REACTIONS (1)
  - Nephrotic syndrome [Unknown]
